FAERS Safety Report 19268159 (Version 1)
Quarter: 2021Q2

REPORT INFORMATION
  Report Type: Spontaneous
  Country: US (occurrence: US)
  Receive Date: 20210518
  Receipt Date: 20210518
  Transmission Date: 20210717
  Serious: No
  Sender: FDA-Public Use
  Company Number: US-APOTEX-2021AP008866

PATIENT
  Sex: Male

DRUGS (1)
  1. GUANFACINE EXTENDED RELEASE TABLET [Suspect]
     Active Substance: GUANFACINE
     Indication: ATTENTION DEFICIT HYPERACTIVITY DISORDER
     Dosage: 1 DOSAGE FORM, Q.H.S.
     Route: 065
     Dates: end: 20210404

REACTIONS (10)
  - Recalled product administered [Unknown]
  - Product substitution issue [Unknown]
  - Night sweats [Recovered/Resolved]
  - Fatigue [Recovered/Resolved]
  - Nausea [Recovered/Resolved]
  - Hyperhidrosis [Recovered/Resolved]
  - Drug withdrawal syndrome [Recovered/Resolved]
  - Restlessness [Recovered/Resolved]
  - Dry eye [Recovered/Resolved]
  - Tremor [Recovered/Resolved]

NARRATIVE: CASE EVENT DATE: 20210405
